FAERS Safety Report 6622255-5 (Version None)
Quarter: 2010Q1

REPORT INFORMATION
  Report Type: 
  Country: None (occurrence: None)
  Receive Date: 20100305
  Receipt Date: 20100220
  Transmission Date: 20100710
  Serious: Yes (Other)
  Sender: FDA-Public Use
  Company Number: 1000011799

PATIENT
  Age: 21 Year
  Sex: Female

DRUGS (1)
  1. LEXAPRO [Suspect]
     Dates: start: 20090605

REACTIONS (6)
  - CRYING [None]
  - DRUG EXPOSURE DURING PREGNANCY [None]
  - MALAISE [None]
  - MENTAL DISORDER [None]
  - PREGNANCY [None]
  - SUICIDAL IDEATION [None]
